FAERS Safety Report 6541453-2 (Version None)
Quarter: 2010Q1

REPORT INFORMATION
  Report Type: 
  Country: None (occurrence: None)
  Receive Date: 20100118
  Receipt Date: 20100112
  Transmission Date: 20100710
  Serious: Yes (Death, Hospitalization, Other)
  Sender: FDA-Public Use
  Company Number: PHHY2008GB21912

PATIENT
  Sex: Male

DRUGS (1)
  1. CLOZARIL [Suspect]
     Indication: SCHIZOPHRENIA
     Dosage: 500 MG/DAY
     Dates: start: 19921203

REACTIONS (32)
  - AGITATION [None]
  - ARTERIOSCLEROSIS [None]
  - BLOOD CREATININE INCREASED [None]
  - BLOOD LACTIC ACID INCREASED [None]
  - BLOOD UREA INCREASED [None]
  - BODY TEMPERATURE DECREASED [None]
  - CHOLELITHIASIS [None]
  - CIRCULATORY COLLAPSE [None]
  - COLD SWEAT [None]
  - CORONARY ARTERY DISEASE [None]
  - DIVERTICULUM INTESTINAL [None]
  - DYSPNOEA [None]
  - EXCORIATION [None]
  - GALLBLADDER ENLARGEMENT [None]
  - GASTROINTESTINAL MOTILITY DISORDER [None]
  - HEPATIC FAILURE [None]
  - HEPATIC LESION [None]
  - HEPATOMEGALY [None]
  - HYPOGLYCAEMIA [None]
  - HYPOTENSION [None]
  - HYPOXIA [None]
  - JAUNDICE [None]
  - LYMPHADENOPATHY [None]
  - MALAISE [None]
  - METABOLIC ACIDOSIS [None]
  - NEOPLASM MALIGNANT [None]
  - NEUTROPHIL COUNT INCREASED [None]
  - PRODUCTIVE COUGH [None]
  - RASH [None]
  - SPLENOMEGALY [None]
  - TACHYPNOEA [None]
  - WHITE BLOOD CELL COUNT INCREASED [None]
